FAERS Safety Report 4640236-8 (Version None)
Quarter: 2005Q2

REPORT INFORMATION
  Report Type: 
  Country: None (occurrence: None)
  Receive Date: 20050419
  Receipt Date: 20050419
  Transmission Date: 20051028
  Serious: Yes (Other)
  Sender: FDA-Public Use
  Company Number: None

PATIENT
  Age: 56 Year
  Sex: Male
  Weight: 85.2762 kg

DRUGS (2)
  1. TEQUIN [Suspect]
     Indication: BRONCHITIS ACUTE
     Dosage: DAILY 40 MG X 5 DAYS
     Dates: start: 20050413, end: 20050418
  2. PREDNISONE [Concomitant]

REACTIONS (1)
  - BLOOD GLUCOSE INCREASED [None]
